FAERS Safety Report 14057561 (Version 2)
Quarter: 2018Q1

REPORT INFORMATION
  Report Type: Spontaneous
  Country: FR (occurrence: FR)
  Receive Date: 20171006
  Receipt Date: 20180309
  Transmission Date: 20180508
  Serious: Yes (Hospitalization, Other)
  Sender: FDA-Public Use
  Company Number: FR-ELI_LILLY_AND_COMPANY-FR201710000214

PATIENT
  Age: 59 Year
  Sex: Male

DRUGS (4)
  1. CISPLATIN. [Concomitant]
     Active Substance: CISPLATIN
     Indication: LUNG CANCER METASTATIC
     Dosage: UNK, CYCLICAL
     Route: 065
  2. PEMETREXED. [Suspect]
     Active Substance: PEMETREXED
     Indication: LUNG CANCER METASTATIC
     Dosage: UNK, CYCLICAL
     Route: 065
  3. FOLIC ACID. [Concomitant]
     Active Substance: FOLIC ACID
     Indication: PREMEDICATION
     Dosage: UNK, UNKNOWN
     Route: 065
  4. VITAMIN B12 [Concomitant]
     Active Substance: CYANOCOBALAMIN
     Indication: PREMEDICATION
     Dosage: UNK, UNKNOWN
     Route: 065

REACTIONS (12)
  - Hyperchloraemia [Recovered/Resolved]
  - Bladder dilatation [Unknown]
  - Bladder dysfunction [Unknown]
  - Acute kidney injury [Recovered/Resolved]
  - Urinary retention [Unknown]
  - Neutropenia [Recovered/Resolved]
  - Thrombocytopenia [Recovered/Resolved]
  - Pyelocaliectasis [Unknown]
  - Hyponatraemia [Recovered/Resolved]
  - Metabolic acidosis [Recovered/Resolved]
  - Urine viscosity increased [Unknown]
  - Pyrexia [Recovering/Resolving]
